FAERS Safety Report 11892638 (Version 1)
Quarter: 2016Q1

REPORT INFORMATION
  Report Type: Spontaneous
  Country: US (occurrence: US)
  Receive Date: 20160106
  Receipt Date: 20160106
  Transmission Date: 20160526
  Serious: No
  Sender: FDA-Public Use
  Company Number: US-JNJFOC-20151201828

PATIENT
  Age: 55 Year
  Sex: Male

DRUGS (4)
  1. RISPERIDONE. [Suspect]
     Active Substance: RISPERIDONE
     Indication: AGITATION
     Dosage: AT BEDTIME
     Route: 048
  2. HALOPERIDOL. [Suspect]
     Active Substance: HALOPERIDOL
     Indication: AGITATION
     Dosage: EVERY 12 HOUR AS NEEDED
     Route: 042
  3. PRAZOSIN [Suspect]
     Active Substance: PRAZOSIN
     Indication: AGITATION
     Route: 048
  4. HALOPERIDOL. [Suspect]
     Active Substance: HALOPERIDOL
     Indication: AGITATION
     Dosage: EVERY HOUR AS NEEDED
     Route: 048

REACTIONS (2)
  - Dysphagia [Recovering/Resolving]
  - Parkinsonism [Recovering/Resolving]
